FAERS Safety Report 5235719-6 (Version None)
Quarter: 2007Q1

REPORT INFORMATION
  Report Type: 
  Country: None (occurrence: None)
  Receive Date: 20070212
  Receipt Date: 20070201
  Transmission Date: 20070707
  Serious: Yes (Death)
  Sender: FDA-Public Use
  Company Number: GB-JNJFOC-20070200378

PATIENT
  Age: 53 Year
  Sex: Male
  Weight: 120 kg

DRUGS (2)
  1. REMICADE [Suspect]
     Indication: PSORIASIS
     Route: 042
  2. METHOTREXATE [Concomitant]
     Indication: PSORIASIS
     Route: 048

REACTIONS (1)
  - CEREBRAL HAEMORRHAGE [None]
